FAERS Safety Report 7241136-X (Version None)
Quarter: 2011Q1

REPORT INFORMATION
  Report Type: 
  Country: None (occurrence: None)
  Receive Date: 20110113
  Receipt Date: 20110104
  Transmission Date: 20110831
  Serious: Yes (Hospitalization)
  Sender: FDA-Public Use
  Company Number: 2010SP061583

PATIENT
  Sex: Female

DRUGS (4)
  1. LITHIUM [Concomitant]
  2. SAPHRIS [Suspect]
     Indication: PRODUCT USED FOR UNKNOWN INDICATION
     Dosage: 5 MG;HS;SL
     Route: 060
     Dates: start: 20100824
  3. KLONOPIN [Concomitant]
  4. ZOLOFT [Concomitant]

REACTIONS (3)
  - ABASIA [None]
  - BALANCE DISORDER [None]
  - FEELING DRUNK [None]
